FAERS Safety Report 16965676 (Version 1)
Quarter: 2019Q4

REPORT INFORMATION
  Report Type: Spontaneous
  Country: US (occurrence: US)
  Receive Date: 20191023
  Receipt Date: 20191023
  Transmission Date: 20200122
  Serious: Yes (Hospitalization)
  Sender: FDA-Public Use
  Company Number: None

PATIENT
  Age: 61 Year
  Sex: Female
  Weight: 95 kg

DRUGS (2)
  1. HEPARIN LOCK FLUSH [Suspect]
     Active Substance: HEPARIN SODIUM
     Indication: CENTRAL VENOUS CATHETERISATION
     Dosage: ?          OTHER FREQUENCY:ONCE;?
     Route: 040
     Dates: start: 20191023, end: 20191023
  2. 0.9% SODIUM CHLORIDE INJECTION, USP [Suspect]
     Active Substance: SODIUM CHLORIDE
     Indication: CENTRAL VENOUS CATHETERISATION
     Route: 040
     Dates: start: 20191023, end: 20191023

REACTIONS (3)
  - Urticaria [None]
  - Swollen tongue [None]
  - Lip swelling [None]

NARRATIVE: CASE EVENT DATE: 20191023
